FAERS Safety Report 7802347-5 (Version None)
Quarter: 2011Q4

REPORT INFORMATION
  Report Type: 
  Country: None (occurrence: None)
  Receive Date: 20111007
  Receipt Date: 20110923
  Transmission Date: 20120403
  Serious: No
  Sender: FDA-Public Use
  Company Number: US-B.I. PHARMACEUTICALS,INC./RIDGEFIELD-2011-BP-22793BP

PATIENT
  Sex: Female

DRUGS (2)
  1. HYDROCODONE BITARTRATE [Concomitant]
     Indication: BACK PAIN
  2. COMBIVENT [Suspect]
     Indication: CHRONIC OBSTRUCTIVE PULMONARY DISEASE
     Dosage: 6 PUF
     Route: 055
     Dates: start: 20020101

REACTIONS (1)
  - OESOPHAGEAL CANDIDIASIS [None]
